FAERS Safety Report 13571435 (Version 4)
Quarter: 2017Q3

REPORT INFORMATION
  Report Type: Spontaneous
  Country: US (occurrence: US)
  Receive Date: 20170523
  Receipt Date: 20170803
  Transmission Date: 20171127
  Serious: Yes (Hospitalization, Other)
  Sender: FDA-Public Use
  Company Number: US-PFIZER INC-2017218910

PATIENT
  Age: 60 Year
  Sex: Male
  Weight: 67 kg

DRUGS (7)
  1. CLONAZEPAM. [Concomitant]
     Active Substance: CLONAZEPAM
     Indication: SLEEP DISORDER
     Dosage: 2 MG, 1X/DAY, (AT BEDTIME FOR SLEEP)
  2. MULTIVITAMIN [Concomitant]
     Active Substance: VITAMINS
     Dosage: UNK
  3. OTREXUP [Suspect]
     Active Substance: METHOTREXATE
     Indication: RHEUMATOID ARTHRITIS
     Dosage: 1.0 MG, WEEKLY
     Route: 058
     Dates: start: 20170322, end: 20170526
  4. PROZAC [Concomitant]
     Active Substance: FLUOXETINE HYDROCHLORIDE
     Indication: DEPRESSION
     Dosage: 20 MG, 1X/DAY(ONE EVERY MORNING)
     Route: 048
  5. KLONOPIN [Concomitant]
     Active Substance: CLONAZEPAM
     Indication: SLEEP DISORDER
     Dosage: 2 MG, 1X/DAY(AT NIGHT)
  6. METHOTREXATE SODIUM. [Suspect]
     Active Substance: METHOTREXATE SODIUM
     Indication: RHEUMATOID ARTHRITIS
     Dosage: UNK
     Dates: end: 20170412
  7. FOLIC ACID. [Concomitant]
     Active Substance: FOLIC ACID
     Indication: RHEUMATOID ARTHRITIS
     Dosage: 3 MG, WEEKLY (1 MG, ONE TABLET THREE TIMES A WEEK)

REACTIONS (17)
  - White blood cell count abnormal [Not Recovered/Not Resolved]
  - Chromaturia [Not Recovered/Not Resolved]
  - Increased viscosity of upper respiratory secretion [Recovering/Resolving]
  - Lymphadenopathy [Unknown]
  - Fatigue [Unknown]
  - Skin odour abnormal [Unknown]
  - Road traffic accident [Unknown]
  - Productive cough [Unknown]
  - Haemorrhage [Unknown]
  - Urine odour abnormal [Not Recovered/Not Resolved]
  - Decreased appetite [Unknown]
  - Malaise [Unknown]
  - Infection [Unknown]
  - Hepatitis C [Unknown]
  - Condition aggravated [Unknown]
  - White blood cell count decreased [Unknown]
  - Cough [Recovering/Resolving]

NARRATIVE: CASE EVENT DATE: 201704
